FAERS Safety Report 8510109-9 (Version None)
Quarter: 2012Q3

REPORT INFORMATION
  Report Type: 
  Country: None (occurrence: None)
  Receive Date: 20120713
  Receipt Date: 20120712
  Transmission Date: 20120928
  Serious: No
  Sender: FDA-Public Use
  Company Number: US-PFIZER INC-2012168343

PATIENT
  Sex: Female
  Weight: 72.562 kg

DRUGS (7)
  1. LISINOPRIL [Concomitant]
     Dosage: UNK
  2. MELLARIL [Concomitant]
     Dosage: UNK
  3. LOVASTATIN [Concomitant]
     Dosage: UNK
  4. NICOTROL [Suspect]
     Indication: SMOKING CESSATION THERAPY
     Dosage: 10MG PER CARTRIDGE, 6X/DAY
     Route: 048
     Dates: start: 20120712, end: 20120712
  5. VITAMIN D [Concomitant]
     Dosage: UNK
  6. ASPIRIN [Concomitant]
     Dosage: UNK
  7. METFORMIN [Concomitant]
     Dosage: UNK

REACTIONS (2)
  - NAUSEA [None]
  - CHEST PAIN [None]
